FAERS Safety Report 7145468-5 (Version None)
Quarter: 2010Q4

REPORT INFORMATION
  Report Type: 
  Country: None (occurrence: None)
  Receive Date: 20101208
  Receipt Date: 20101115
  Transmission Date: 20110411
  Serious: Yes (Other)
  Sender: FDA-Public Use
  Company Number: JP-ROCHE-746003

PATIENT
  Sex: Female
  Weight: 3.3 kg

DRUGS (1)
  1. OSELTAMIVIR [Suspect]
     Indication: INFLUENZA
     Route: 064
     Dates: start: 20101118, end: 20101122

REACTIONS (3)
  - CARDIAC MURMUR [None]
  - DRUG EXPOSURE DURING PREGNANCY [None]
  - NORMAL NEWBORN [None]
